FAERS Safety Report 8544452-4 (Version None)
Quarter: 2012Q3

REPORT INFORMATION
  Report Type: 
  Country: None (occurrence: None)
  Receive Date: 20120717
  Receipt Date: 20120628
  Transmission Date: 20120928
  Serious: Yes (Hospitalization)
  Sender: FDA-Public Use
  Company Number: 2012MPI00121

PATIENT
  Age: 19 Year
  Sex: Female

DRUGS (8)
  1. ACYCLOVIR [Concomitant]
  2. CYANOCOBALAMIN [Concomitant]
  3. FOLIC ACID [Concomitant]
  4. AMOXIL (AMOXICILLIN SODIUM) [Concomitant]
  5. ADCAL D3 (CALCIUM CARBONATE, COLECALCIFEROL) [Concomitant]
  6. BRENTUXIMAB VEDOTIN (BRENTUXIMAB VEDOTIN) INJECTION [Suspect]
     Indication: HODGKIN'S DISEASE RECURRENT
     Dosage: 1.8 MG/KG, Q21D, INTRAVENOUS
     Route: 042
     Dates: start: 20110523, end: 20111124
  7. SEPTRA [Concomitant]
  8. ELLESTE-DUET (ESTRADIOL, NORETHISTERONE ACETATE) [Concomitant]

REACTIONS (9)
  - CONSTIPATION [None]
  - MUSCULOSKELETAL STIFFNESS [None]
  - VULVA CYST [None]
  - UPPER RESPIRATORY TRACT INFECTION [None]
  - HEADACHE [None]
  - TYPE IV HYPERSENSITIVITY REACTION [None]
  - HYPERSENSITIVITY [None]
  - INFUSION RELATED REACTION [None]
  - ABASIA [None]
